FAERS Safety Report 8020995-7 (Version None)
Quarter: 2011Q4

REPORT INFORMATION
  Report Type: 
  Country: None (occurrence: None)
  Receive Date: 20111230
  Receipt Date: 20111230
  Transmission Date: 20120403
  Serious: Yes (Other)
  Sender: FDA-Public Use
  Company Number: None

PATIENT
  Sex: Female
  Weight: 27.2158 kg

DRUGS (4)
  1. ADDERALL XR 10 [Concomitant]
  2. HIZENTRA [Suspect]
     Indication: HYPOGAMMAGLOBULINAEMIA
     Dosage: 2 GRAMS TWICE WEEKLY
     Dates: start: 20111227
  3. HIZENTRA [Suspect]
     Indication: HYPOGAMMAGLOBULINAEMIA
     Dosage: 2 GRAMS TWICE WEEKLY
     Dates: start: 20111222
  4. VYVANSE [Concomitant]

REACTIONS (2)
  - URTICARIA [None]
  - PRURITUS [None]
